FAERS Safety Report 4358307-2 (Version None)
Quarter: 2004Q2

REPORT INFORMATION
  Report Type: 
  Country: None (occurrence: None)
  Receive Date: 20040511
  Receipt Date: 20040511
  Transmission Date: 20050107
  Serious: Yes (Life-Threatening, Hospitalization)
  Sender: FDA-Public Use
  Company Number: None

PATIENT
  Age: 55 Year
  Sex: Female
  Weight: 50.3 kg

DRUGS (14)
  1. DILANTIN [Suspect]
  2. HYDROCORTISONE [Concomitant]
  3. PHENOBARBITAL TAB [Concomitant]
  4. ACETAMINOPHEN W/ CODEINE [Concomitant]
  5. LISINOPRIL [Concomitant]
  6. WARFARIN SODIUM [Concomitant]
  7. LABETALOL HCL [Concomitant]
  8. OMEPRAZOLE [Concomitant]
  9. LANSOPRAZOLE [Concomitant]
  10. FIORICET [Concomitant]
  11. FERROUS SULFATE TAB [Concomitant]
  12. .. [Concomitant]
  13. PREDNISONE [Concomitant]
  14. PHENOBARBITAL TAB [Concomitant]

REACTIONS (2)
  - ATAXIA [None]
  - SOMNOLENCE [None]
